FAERS Safety Report 8502018 (Version 3)
Quarter: 2016Q1

REPORT INFORMATION
  Report Type: Spontaneous
  Country: US (occurrence: None)
  Receive Date: 20120404
  Receipt Date: 20160304
  Transmission Date: 20160526
  Serious: Yes (Hospitalization, Other)
  Sender: FDA-Public Use
  Company Number: ADR-2010-8649

PATIENT
  Sex: Male

DRUGS (1)
  1. LIORESAL [Suspect]
     Active Substance: BACLOFEN
     Indication: MUSCLE SPASTICITY
     Dosage: 2237 MCG/DAY

REACTIONS (8)
  - Incorrect route of drug administration [None]
  - Nervous system disorder [None]
  - Medical device site discharge [None]
  - Abnormal behaviour [None]
  - Implant site fibrosis [None]
  - Medical device site haemorrhage [None]
  - Neurological decompensation [None]
  - Medical device site fibrosis [None]
